FAERS Safety Report 19248841 (Version 2)
Quarter: 2021Q2

REPORT INFORMATION
  Report Type: Spontaneous
  Country: US (occurrence: US)
  Receive Date: 20210512
  Receipt Date: 20210625
  Transmission Date: 20210717
  Serious: No
  Sender: FDA-Public Use
  Company Number: US-ASTRAZENECA-2021A407038

PATIENT
  Sex: Female
  Weight: 42.6 kg

DRUGS (1)
  1. SYMBICORT [Suspect]
     Active Substance: BUDESONIDE\FORMOTEROL FUMARATE DIHYDRATE
     Indication: CHRONIC OBSTRUCTIVE PULMONARY DISEASE
     Dosage: 160MCG/4.5MCG
     Route: 055

REACTIONS (7)
  - Intentional device misuse [Unknown]
  - Overdose [Unknown]
  - Product packaging issue [Unknown]
  - Nervousness [Unknown]
  - Hypoacusis [Unknown]
  - Device malfunction [Unknown]
  - Device failure [Unknown]
